FAERS Safety Report 21865434 (Version 2)
Quarter: 2023Q1

REPORT INFORMATION
  Report Type: Report from Study
  Country: NL (occurrence: None)
  Receive Date: 20230116
  Receipt Date: 20230127
  Transmission Date: 20230418
  Serious: Yes (Hospitalization)
  Sender: FDA-Public Use
  Company Number: NL-MDD US Operations-MDD202112-002550

PATIENT
  Age: 53 Year
  Sex: Male

DRUGS (11)
  1. APOMORPHINE HYDROCHLORIDE [Suspect]
     Active Substance: APOMORPHINE HYDROCHLORIDE
     Indication: Parkinson^s disease
     Route: 058
     Dates: start: 20211108
  2. APOMORPHINE HYDROCHLORIDE [Suspect]
     Active Substance: APOMORPHINE HYDROCHLORIDE
     Dosage: 5MG
     Route: 058
  3. TEMAZEPAM [Concomitant]
     Active Substance: TEMAZEPAM
  4. OXYCODONE [Concomitant]
     Active Substance: OXYCODONE
  5. OXYCODONE [Concomitant]
     Active Substance: OXYCODONE
  6. OXYCODONE [Concomitant]
     Active Substance: OXYCODONE
  7. BENSERAZIDE\LEVODOPA [Concomitant]
     Active Substance: BENSERAZIDE\LEVODOPA
     Dosage: 1 DF EACH OF 100/25MG
  8. Macrogol/Salt [Concomitant]
  9. QUETIAPINE [Concomitant]
     Active Substance: QUETIAPINE
  10. ROTIGOTINE [Concomitant]
     Active Substance: ROTIGOTINE
  11. ROTIGOTINE [Concomitant]
     Active Substance: ROTIGOTINE

REACTIONS (4)
  - Application site abscess [Unknown]
  - Injection site inflammation [Unknown]
  - Muscle spasms [Not Recovered/Not Resolved]
  - Injection site nodule [Not Recovered/Not Resolved]

NARRATIVE: CASE EVENT DATE: 20211130
